FAERS Safety Report 9250944 (Version 2)
Quarter: 2013Q2

REPORT INFORMATION
  Report Type: Report from Study
  Country: IN (occurrence: IN)
  Receive Date: 20130424
  Receipt Date: 20130509
  Transmission Date: 20140414
  Serious: Yes (Death, Hospitalization, Other)
  Sender: FDA-Public Use
  Company Number: PHHY2013IN039785

PATIENT
  Age: 21 Year
  Sex: Male

DRUGS (8)
  1. GLIVEC [Suspect]
     Indication: CHRONIC MYELOID LEUKAEMIA
     Dosage: 400 MG
  2. TAPENTADOL [Concomitant]
     Indication: PYREXIA
     Dosage: 1 DF, SOS
     Route: 048
     Dates: start: 20130419, end: 20130420
  3. TAPENTADOL [Concomitant]
     Indication: ABDOMINAL PAIN
  4. ZYLORIC [Concomitant]
     Indication: CHRONIC MYELOID LEUKAEMIA
     Dosage: 1 DF, TID
     Route: 048
     Dates: start: 20130419, end: 20130420
  5. ZOFER [Concomitant]
     Indication: VOMITING
     Dosage: 1 DF,SOS
     Route: 048
     Dates: start: 20130419, end: 20130420
  6. CROCIN [Concomitant]
     Indication: PYREXIA
     Dosage: 1 DF, STAT
     Route: 048
     Dates: start: 20130419, end: 20130420
  7. ANTIEMETICS [Concomitant]
     Dosage: UNK UKN, UNK
  8. PARACIP [Concomitant]
     Dosage: UNK UKN, UNK
     Route: 042

REACTIONS (13)
  - Chronic myeloid leukaemia transformation [Fatal]
  - General physical health deterioration [Unknown]
  - Epistaxis [Unknown]
  - Asthenia [Unknown]
  - Pyrexia [Unknown]
  - Hypophagia [Unknown]
  - Decreased appetite [Unknown]
  - Abdominal pain [Unknown]
  - Bradycardia [Unknown]
  - Febrile convulsion [Unknown]
  - Tachypnoea [Unknown]
  - Oxygen saturation decreased [Unknown]
  - Tachycardia [Unknown]
